FAERS Safety Report 8684334 (Version 3)
Quarter: 2013Q4

REPORT INFORMATION
  Report Type: Spontaneous
  Country: US (occurrence: US)
  Receive Date: 20120726
  Receipt Date: 20131105
  Transmission Date: 20140711
  Serious: Yes (Congenital Anomaly, Other)
  Sender: FDA-Public Use
  Company Number: US-009507513-1206USA01760B1

PATIENT
  Sex: Female
  Weight: 1.35 kg

DRUGS (6)
  1. ISENTRESS [Suspect]
     Indication: HIV INFECTION
     Dosage: 800 MG, QD
     Route: 064
     Dates: start: 20111115, end: 20120516
  2. PREZISTA [Suspect]
     Dosage: 1200 MG, QD
     Route: 064
     Dates: start: 20111115, end: 20120516
  3. NORVIR [Suspect]
     Dosage: 200 MG, QD
     Route: 064
     Dates: start: 20111115, end: 20120516
  4. INTELENCE [Suspect]
     Dosage: 400 MG, QD
     Route: 064
     Dates: start: 20111115, end: 20120516
  5. EPZICOM [Suspect]
     Dosage: 1 DF, QD
     Route: 064
     Dates: start: 20111115, end: 20120516
  6. RETROVIR [Suspect]
     Dosage: 2000 MG, QD
     Route: 064
     Dates: start: 20111115, end: 20120516

REACTIONS (4)
  - Foetal growth restriction [Unknown]
  - Small for dates baby [Unknown]
  - Low birth weight baby [Unknown]
  - Foetal exposure during pregnancy [Recovered/Resolved]
